FAERS Safety Report 10581635 (Version 3)
Quarter: 2014Q4

REPORT INFORMATION
  Report Type: Spontaneous
  Country: US (occurrence: None)
  Receive Date: 20141110
  Receipt Date: 20141216
  Transmission Date: 20150529
  Serious: Yes (Hospitalization)
  Sender: FDA-Public Use
  Company Number: 2014-US-014495

PATIENT
  Age: 63 Year
  Sex: Male

DRUGS (5)
  1. NORCO (HYDROCODONE BITARTRATE, PARACETAMOL) [Concomitant]
  2. PRIALT [Suspect]
     Active Substance: ZICONOTIDE ACETATE
     Indication: BACK PAIN
     Dosage: UNK UG
     Route: 037
     Dates: start: 20140925
  3. MORPHINE SULFATE. [Suspect]
     Active Substance: MORPHINE SULFATE
     Indication: PAIN
     Route: 037
  4. MORPHINE SULFATE. [Suspect]
     Active Substance: MORPHINE SULFATE
     Indication: BACK PAIN
     Route: 037
  5. PRIALT [Suspect]
     Active Substance: ZICONOTIDE ACETATE
     Indication: PAIN
     Dosage: UNK UG
     Route: 037
     Dates: start: 20140925

REACTIONS (15)
  - Dizziness [None]
  - Hypersensitivity [None]
  - Blood creatinine increased [None]
  - Asthenia [None]
  - Blood creatine phosphokinase increased [None]
  - Dyspnoea [None]
  - Muscle spasms [None]
  - Headache [None]
  - Back pain [None]
  - Musculoskeletal stiffness [None]
  - Chromaturia [None]
  - Somnolence [None]
  - Chills [None]
  - Sensation of foreign body [None]
  - Visual impairment [None]

NARRATIVE: CASE EVENT DATE: 201409
